FAERS Safety Report 17505670 (Version 1)
Quarter: 2020Q1

REPORT INFORMATION
  Report Type: Report from Study
  Country: CO (occurrence: CO)
  Receive Date: 20200306
  Receipt Date: 20200306
  Transmission Date: 20200409
  Serious: Yes (Other)
  Sender: FDA-Public Use
  Company Number: CO-ROCHE-2476346

PATIENT
  Sex: Female

DRUGS (1)
  1. ACTEMRA [Suspect]
     Active Substance: TOCILIZUMAB
     Indication: PRODUCT USED FOR UNKNOWN INDICATION
     Route: 065

REACTIONS (12)
  - Transaminases increased [Unknown]
  - Self-medication [Unknown]
  - Thrombosis [Unknown]
  - Peripheral swelling [Unknown]
  - Hepatotoxicity [Unknown]
  - Joint swelling [Unknown]
  - Swelling face [Unknown]
  - Muscle spasms [Unknown]
  - Facial pain [Unknown]
  - Headache [Unknown]
  - Deep vein thrombosis [Unknown]
  - Haematoma [Unknown]
